FAERS Safety Report 16924105 (Version 7)
Quarter: 2019Q4

REPORT INFORMATION
  Report Type: Spontaneous
  Country: CA (occurrence: CA)
  Receive Date: 20191016
  Receipt Date: 20191223
  Transmission Date: 20200122
  Serious: Yes (Other)
  Sender: FDA-Public Use
  Company Number: CA-PFIZER INC-2019440780

PATIENT
  Age: 61 Year
  Sex: Male

DRUGS (8)
  1. SYNTHROID [Concomitant]
     Active Substance: LEVOTHYROXINE SODIUM
     Indication: COLITIS ULCERATIVE
     Dosage: UNK
     Route: 065
  2. VITAMIN D [COLECALCIFEROL] [Concomitant]
     Active Substance: CHOLECALCIFEROL
     Indication: COLITIS ULCERATIVE
     Dosage: UNK
     Route: 065
  3. CRESTOR [Concomitant]
     Active Substance: ROSUVASTATIN CALCIUM
     Indication: COLITIS ULCERATIVE
     Dosage: UNK
     Route: 065
  4. XELJANZ [Suspect]
     Active Substance: TOFACITINIB CITRATE
     Indication: COLITIS ULCERATIVE
     Dosage: 10 MG, 2X/DAY
     Route: 048
     Dates: start: 20190921, end: 20191016
  5. PARACETAMOL [Concomitant]
     Active Substance: ACETAMINOPHEN
     Indication: COLITIS ULCERATIVE
     Dosage: UNK
     Route: 065
  6. XELJANZ [Suspect]
     Active Substance: TOFACITINIB CITRATE
     Dosage: 10 MG, 2X/DAY
     Route: 048
     Dates: start: 20191104
  7. LYRICA [Concomitant]
     Active Substance: PREGABALIN
     Indication: COLITIS ULCERATIVE
     Dosage: UNK
     Route: 065
  8. CORTIMENT [BUDESONIDE] [Concomitant]
     Active Substance: BUDESONIDE
     Indication: COLITIS ULCERATIVE
     Dosage: UNK
     Route: 065

REACTIONS (4)
  - Hernia [Unknown]
  - Accident [Unknown]
  - Diarrhoea [Unknown]
  - Haematochezia [Unknown]

NARRATIVE: CASE EVENT DATE: 2019
